FAERS Safety Report 6991911-1 (Version None)
Quarter: 2010Q3

REPORT INFORMATION
  Report Type: 
  Country: None (occurrence: None)
  Receive Date: 20100915
  Receipt Date: 20100915
  Transmission Date: 20110219
  Serious: Yes (Other)
  Sender: FDA-Public Use
  Company Number: None

PATIENT
  Age: 20 Year
  Sex: Female
  Weight: 56.6996 kg

DRUGS (1)
  1. LOESTRIN 24 FE [Suspect]
     Dosage: ONCE DAILY PO
     Route: 048

REACTIONS (4)
  - FUNGAL INFECTION [None]
  - MALAISE [None]
  - RESPIRATORY TRACT INFECTION [None]
  - VARICOSE VEIN [None]
